FAERS Safety Report 20921579 (Version 1)
Quarter: 2022Q2

REPORT INFORMATION
  Report Type: Other
  Country: US (occurrence: US)
  Receive Date: 20220606
  Receipt Date: 20220606
  Transmission Date: 20220721
  Serious: Yes (Death, Hospitalization, Other)
  Sender: FDA-Public Use
  Company Number: US-BoehringerIngelheim-2019-BI-023382

PATIENT
  Age: 67 Year

DRUGS (2)
  1. ALTEPLASE [Suspect]
     Active Substance: ALTEPLASE
     Indication: Ischaemic stroke
     Dosage: BOLUS
     Route: 040
  2. ALTEPLASE [Suspect]
     Active Substance: ALTEPLASE
     Dosage: INFUSION
     Route: 042

REACTIONS (5)
  - Cardiac arrest [Fatal]
  - Cerebral haemorrhage [Unknown]
  - Brain herniation [Unknown]
  - Haemorrhagic transformation stroke [Unknown]
  - Cerebral mass effect [Unknown]
